FAERS Safety Report 26072457 (Version 1)
Quarter: 2025Q4

REPORT INFORMATION
  Report Type: Spontaneous
  Country: US (occurrence: US)
  Receive Date: 20251120
  Receipt Date: 20251120
  Transmission Date: 20260118
  Serious: No
  Sender: NOVO NORDISK
  Company Number: US-NOVOPROD-1519619

PATIENT
  Age: 57 Year
  Sex: Female

DRUGS (2)
  1. FIASP [Suspect]
     Active Substance: INSULIN ASPART
     Indication: Type 1 diabetes mellitus
     Dosage: 24 IU, QD
     Route: 058
     Dates: start: 2021
  2. TRESIBA [Concomitant]
     Active Substance: INSULIN DEGLUDEC
     Indication: Type 1 diabetes mellitus
     Dosage: 26 IU, QD
     Route: 058
     Dates: start: 2023

REACTIONS (1)
  - Visual impairment [Unknown]
